FAERS Safety Report 22036561 (Version 1)
Quarter: 2023Q1

REPORT INFORMATION
  Report Type: Spontaneous
  Country: FR (occurrence: FR)
  Receive Date: 20230225
  Receipt Date: 20230225
  Transmission Date: 20230418
  Serious: Yes (Other)
  Sender: FDA-Public Use
  Company Number: FR-AMGEN-FRASP2022216462

PATIENT
  Age: 77 Year

DRUGS (11)
  1. LUMAKRAS [Suspect]
     Active Substance: SOTORASIB
     Indication: Lung cancer metastatic
     Dosage: 960 MILLIGRAM
     Route: 065
     Dates: start: 20220901, end: 20221123
  2. LUMAKRAS [Suspect]
     Active Substance: SOTORASIB
     Dosage: 480 MILLIGRAM, DOSE REDUCED
     Route: 065
     Dates: start: 20221123, end: 20221208
  3. COZAAR [Concomitant]
     Active Substance: LOSARTAN POTASSIUM
  4. IVABRADINE [Concomitant]
     Active Substance: IVABRADINE
  5. CRESTOR [Concomitant]
     Active Substance: ROSUVASTATIN CALCIUM
  6. NICORANDIL [Concomitant]
     Active Substance: NICORANDIL
  7. BISOPROLOL [Concomitant]
     Active Substance: BISOPROLOL
  8. HERBALS\SAW PALMETTO [Concomitant]
     Active Substance: HERBALS\SAW PALMETTO
  9. ESOMEPRAZOLE [Concomitant]
     Active Substance: ESOMEPRAZOLE
  10. FUROSEMIDE [Concomitant]
     Active Substance: FUROSEMIDE
  11. PLAVIX [Concomitant]
     Active Substance: CLOPIDOGREL BISULFATE

REACTIONS (5)
  - Hepatotoxicity [Recovered/Resolved]
  - Thrombocytopenia [Unknown]
  - Diarrhoea [Unknown]
  - Nausea [Recovered/Resolved]
  - Vomiting [Unknown]

NARRATIVE: CASE EVENT DATE: 20221110
